FAERS Safety Report 17400751 (Version 1)
Quarter: 2020Q1

REPORT INFORMATION
  Report Type: Spontaneous
  Country: US (occurrence: US)
  Receive Date: 20200211
  Receipt Date: 20200211
  Transmission Date: 20200409
  Serious: Yes (Life-Threatening, Hospitalization, Other)
  Sender: FDA-Public Use
  Company Number: US-ACCORD-171864

PATIENT
  Age: 65 Year
  Sex: Female
  Weight: 90 kg

DRUGS (6)
  1. LISINOPRIL. [Suspect]
     Active Substance: LISINOPRIL
     Indication: HYPERTENSION
  2. EPINEPHRINE. [Concomitant]
     Active Substance: EPINEPHRINE
  3. METOPROLOL. [Concomitant]
     Active Substance: METOPROLOL
     Indication: HYPERTENSION
  4. AMINOCAPROIC ACID/AMINOCAPROICATE [Concomitant]
  5. NOREPINEPHRINE. [Concomitant]
     Active Substance: NOREPINEPHRINE
     Route: 042
  6. ACETYLSALICYLIC ACID [Concomitant]
     Active Substance: ASPIRIN

REACTIONS (5)
  - Protrusion tongue [Recovered/Resolved]
  - Drug eruption [Recovered/Resolved]
  - Angioedema [Recovered/Resolved]
  - Stridor [Recovered/Resolved]
  - Hypersensitivity [Recovered/Resolved]
